FAERS Safety Report 11222999 (Version 2)
Quarter: 2015Q4

REPORT INFORMATION
  Report Type: Spontaneous
  Country: BR (occurrence: BR)
  Receive Date: 20150626
  Receipt Date: 20151001
  Transmission Date: 20160304
  Serious: Yes (Hospitalization)
  Sender: FDA-Public Use
  Company Number: BR-BRISTOL-MYERS SQUIBB COMPANY-BMS-2015-041033

PATIENT
  Age: 87 Year
  Sex: Female
  Weight: 76 kg

DRUGS (13)
  1. DIGOXIN. [Concomitant]
     Active Substance: DIGOXIN
     Indication: CARDIAC DISORDER
     Dosage: 1 TAB, QD
     Route: 065
  2. SUSTRATE [Concomitant]
     Active Substance: PROPATYL NITRATE
     Indication: ARRHYTHMIA
     Dosage: 1 DF, Q12H
     Route: 065
     Dates: start: 201503
  3. DIOSMIN [Concomitant]
     Active Substance: DIOSMIN
     Indication: VARICOSE VEIN
     Dosage: 1 DF, QD
     Route: 065
  4. SIMVASTATIN. [Concomitant]
     Active Substance: SIMVASTATIN
     Indication: CARDIAC DISORDER
     Dosage: 1 TAB, QD
     Route: 065
  5. LEVOID [Concomitant]
     Active Substance: LEVOTHYROXINE
     Indication: THYROID DISORDER
     Dosage: 1 DF, QD
     Route: 065
  6. SERETIDE [Concomitant]
     Active Substance: FLUTICASONE FUROATE\SALMETEROL XINAFOATE
     Indication: HYPOXIA
     Dosage: 1 DF, BID
     Route: 065
     Dates: start: 201502
  7. ELIQUIS [Suspect]
     Active Substance: APIXABAN
     Indication: CEREBROVASCULAR ACCIDENT PROPHYLAXIS
     Dosage: 2 TAB, QD; Q12HRS
     Route: 048
     Dates: start: 201503
  8. ALDACTONE [Concomitant]
     Active Substance: SPIRONOLACTONE
     Indication: CARDIAC DISORDER
     Dosage: 1 TAB, Q12H
     Route: 065
  9. FLUIMUCIL [Concomitant]
     Active Substance: ACETYLCYSTEINE
     Indication: BRONCHIECTASIS
     Dosage: 1 DF, QD
     Route: 065
  10. OMEGA 3                            /01333901/ [Concomitant]
     Active Substance: FISH OIL\TOCOPHEROL
     Indication: THYROID DISORDER
     Dosage: 1 DF, BID
     Route: 065
  11. GALVUS [Concomitant]
     Active Substance: VILDAGLIPTIN
     Indication: BLOOD GLUCOSE
     Dosage: 2 TAB, QD
     Route: 065
     Dates: start: 201412
  12. DEPURA [Concomitant]
     Active Substance: CHOLECALCIFEROL
     Indication: ADVERSE EVENT
     Dosage: 1 DF, QD; 10 DROPS
     Route: 065
  13. ARTROLIVE [Concomitant]
     Active Substance: CHONDROITIN SULFATE (BOVINE)\GLUCOSAMINE SULFATE
     Indication: OSTEOARTHRITIS
     Dosage: 1 DF, BID
     Route: 065

REACTIONS (2)
  - Peripheral swelling [Unknown]
  - Limb injury [Unknown]

NARRATIVE: CASE EVENT DATE: 20150606
